FAERS Safety Report 25189590 (Version 1)
Quarter: 2025Q2

REPORT INFORMATION
  Report Type: Spontaneous
  Country: GB (occurrence: GB)
  Receive Date: 20250411
  Receipt Date: 20250411
  Transmission Date: 20250716
  Serious: Yes (Other)
  Sender: TEVA
  Company Number: GB-MHRA-TPP12339504C476053YC1744043100992

PATIENT
  Age: 63 Year
  Sex: Male
  Weight: 117 kg

DRUGS (15)
  1. DICLOFENAC [Suspect]
     Active Substance: DICLOFENAC
     Indication: Ill-defined disorder
     Route: 065
     Dates: start: 20250306
  2. NAPROXEN [Concomitant]
     Active Substance: NAPROXEN
     Indication: Ill-defined disorder
     Dosage: TAKE ONE TABLET TWICE DAILY WITH FOOD
     Route: 065
     Dates: start: 20220916, end: 20250306
  3. PROPRANOLOL [Concomitant]
     Active Substance: PROPRANOLOL HYDROCHLORIDE
     Indication: Ill-defined disorder
     Dosage: TAKE ONE DAILY
     Route: 065
     Dates: start: 20221013
  4. DULOXETINE [Concomitant]
     Active Substance: DULOXETINE
     Indication: Ill-defined disorder
     Dosage: TAKE TWO DAILY
     Route: 065
     Dates: start: 20220819
  5. PREGABALIN [Concomitant]
     Active Substance: PREGABALIN
     Indication: Ill-defined disorder
     Dosage: TAKE ONE CAPSULE TWICE DAILY
     Route: 065
     Dates: start: 20191003
  6. ATORVASTATIN [Concomitant]
     Active Substance: ATORVASTATIN
     Indication: Ill-defined disorder
     Dosage: ONE TO BE TAKEN EVERY DAY AT NIGHT
     Route: 065
     Dates: start: 20121120
  7. RAMIPRIL [Concomitant]
     Active Substance: RAMIPRIL
     Indication: Ill-defined disorder
     Dosage: TAKE ONE DAILY
     Route: 065
     Dates: start: 20180828
  8. MORPHINE SULFATE [Concomitant]
     Active Substance: MORPHINE SULFATE
     Indication: Ill-defined disorder
     Dosage: 5ML UP TO FOUR TIMES A DAY FOR BREAKTHROUGH PAIN
     Route: 065
     Dates: start: 20231027
  9. ORLISTAT [Concomitant]
     Active Substance: ORLISTAT
     Indication: Ill-defined disorder
     Route: 065
     Dates: start: 20140529
  10. METFORMIN [Concomitant]
     Active Substance: METFORMIN HYDROCHLORIDE
     Indication: Ill-defined disorder
     Dosage: ONE TABLET IN THE MORNING FOR ONE WEEK WITH FOO...
     Route: 065
     Dates: start: 20240325
  11. ACETAMINOPHEN [Concomitant]
     Active Substance: ACETAMINOPHEN
     Indication: Ill-defined disorder
     Dosage: TAKE 1 OR 2 4 TIMES/DAY
     Route: 065
     Dates: start: 20100713
  12. MORPHINE SULFATE [Concomitant]
     Active Substance: MORPHINE SULFATE
     Indication: Ill-defined disorder
     Dosage: ONE CAPSULE EVERY 12 HRS FOR PAIN
     Route: 065
     Dates: start: 20241126
  13. OMEPRAZOLE [Concomitant]
     Active Substance: OMEPRAZOLE
     Indication: Ill-defined disorder
     Dosage: ONE TO BE TAKEN ONCE DAILY
     Route: 065
     Dates: start: 20130227
  14. OMEPRAZOLE [Concomitant]
     Active Substance: OMEPRAZOLE
     Indication: Ill-defined disorder
     Dosage: ONE TO BE TAKEN ONCE DAILY
     Route: 065
     Dates: start: 20130227
  15. CINNARIZINE [Concomitant]
     Active Substance: CINNARIZINE
     Indication: Dizziness
     Route: 065
     Dates: start: 20250206, end: 20250306

REACTIONS (2)
  - Angioedema [Recovered/Resolved]
  - Tryptase [Unknown]

NARRATIVE: CASE EVENT DATE: 20250318
